FAERS Safety Report 7393648-6 (Version None)
Quarter: 2011Q2

REPORT INFORMATION
  Report Type: 
  Country: None (occurrence: None)
  Receive Date: 20110405
  Receipt Date: 20110329
  Transmission Date: 20111010
  Serious: Yes (Hospitalization)
  Sender: FDA-Public Use
  Company Number: NL-ABBOTT-11P-114-0714919-00

PATIENT
  Sex: Male
  Weight: 79 kg

DRUGS (7)
  1. ATORVASTATIN CALCIUM [Concomitant]
     Indication: BLOOD CHOLESTEROL INCREASED
     Dosage: COATED TABLET
     Route: 048
     Dates: start: 20090101
  2. PANTOPRAZOLE SODIUM [Concomitant]
     Indication: GASTRIC DISORDER
     Route: 048
     Dates: start: 20090101
  3. FOLIC ACID [Concomitant]
     Indication: VITAMIN SUPPLEMENTATION
     Route: 048
     Dates: start: 20090101
  4. PANTOPRAZOLE SODIUM [Concomitant]
     Indication: PROPHYLAXIS
  5. HUMIRA [Suspect]
     Indication: PSORIATIC ARTHROPATHY
     Route: 058
     Dates: start: 20091207
  6. ALFUSOZINE [Concomitant]
     Indication: PROSTATOMEGALY
     Route: 048
  7. METHOTREXATE [Concomitant]
     Indication: PSORIATIC ARTHROPATHY
     Route: 048
     Dates: start: 20090101

REACTIONS (3)
  - DYSPNOEA [None]
  - HYPOTENSION [None]
  - NAUSEA [None]
